FAERS Safety Report 19228829 (Version 3)
Quarter: 2021Q3

REPORT INFORMATION
  Report Type: Spontaneous
  Country: US (occurrence: US)
  Receive Date: 20210506
  Receipt Date: 20210831
  Transmission Date: 20211014
  Serious: Yes (Other)
  Sender: FDA-Public Use
  Company Number: US-ROCHE-2775313

PATIENT
  Sex: Female

DRUGS (3)
  1. ESBRIET [Suspect]
     Active Substance: PIRFENIDONE
     Route: 048
     Dates: start: 20210616
  2. ESBRIET [Suspect]
     Active Substance: PIRFENIDONE
     Route: 048
     Dates: start: 20210122
  3. ESBRIET [Suspect]
     Active Substance: PIRFENIDONE
     Indication: IDIOPATHIC PULMONARY FIBROSIS
     Route: 048
     Dates: start: 20210119, end: 20210319

REACTIONS (17)
  - Abdominal discomfort [Unknown]
  - Abdominal pain upper [Unknown]
  - Arthralgia [Unknown]
  - Pruritus [Unknown]
  - Asthenia [Unknown]
  - Decreased appetite [Unknown]
  - Heart rate increased [Unknown]
  - Back pain [Unknown]
  - Chest pain [Unknown]
  - Headache [Unknown]
  - Off label use [Unknown]
  - Taste disorder [Unknown]
  - Pyrexia [Unknown]
  - Cervical vertebral fracture [Unknown]
  - Neck pain [Unknown]
  - Dizziness [Unknown]
  - Chest discomfort [Unknown]
